FAERS Safety Report 19278329 (Version 1)
Quarter: 2021Q2

REPORT INFORMATION
  Report Type: Spontaneous
  Country: US (occurrence: US)
  Receive Date: 20210520
  Receipt Date: 20210520
  Transmission Date: 20210717
  Serious: Yes (Hospitalization)
  Sender: FDA-Public Use
  Company Number: None

PATIENT
  Age: 73 Year
  Sex: Female
  Weight: 77.3 kg

DRUGS (2)
  1. FASLODEX [Suspect]
     Active Substance: FULVESTRANT
     Dates: end: 20210426
  2. PALBOCICLIB (PD?0332991) [Suspect]
     Active Substance: PALBOCICLIB
     Dates: end: 20210507

REACTIONS (9)
  - Confusional state [None]
  - Diverticulum intestinal [None]
  - Pneumonia [None]
  - Gastrointestinal wall thickening [None]
  - Pancreatic duct dilatation [None]
  - Hepatic steatosis [None]
  - Lung consolidation [None]
  - Hypoxia [None]
  - Interstitial lung disease [None]

NARRATIVE: CASE EVENT DATE: 20210507
